FAERS Safety Report 9167340 (Version 2)
Quarter: 2013Q2

REPORT INFORMATION
  Report Type: Spontaneous
  Country: US (occurrence: US)
  Receive Date: 20130318
  Receipt Date: 20130419
  Transmission Date: 20140414
  Serious: Yes (Life-Threatening, Hospitalization, Other)
  Sender: FDA-Public Use
  Company Number: US-009507513-1303USA006682

PATIENT
  Age: 53 Year
  Sex: Female

DRUGS (13)
  1. VICTRELIS [Suspect]
     Indication: CHRONIC HEPATITIS C
     Dosage: 3 IN 1 D
     Route: 065
     Dates: start: 20120903, end: 20130226
  2. VICTRELIS [Suspect]
     Dosage: 3 IN 1 D
     Route: 065
     Dates: start: 20120309
  3. VICTRELIS [Suspect]
     Dosage: 24 DF, UNK
     Route: 065
  4. PEGASYS [Suspect]
     Indication: CHRONIC HEPATITIS C
     Dosage: 180 MICROGRAM, QW, 1 IN 1 WK
     Route: 058
     Dates: start: 20120731
  5. PEGASYS [Suspect]
     Dosage: 180 MICROGRAM, QW, 1 IN 1 WK, PROCLICK AUTO INJECTOR
     Route: 058
     Dates: start: 20120309
  6. RIBASPHERE [Suspect]
     Indication: CHRONIC HEPATITIS C
     Dosage: 1200 MG, QD, 1 IN 1 D
     Route: 065
     Dates: start: 20120731, end: 20130320
  7. RIBASPHERE [Suspect]
     Dosage: 1200 MG, QD, 1 IN 1 D
     Route: 065
     Dates: start: 20120309
  8. RIBASPHERE [Suspect]
     Dosage: 800 MG, QD, 1 IN 1 D
     Route: 065
     Dates: start: 20121211
  9. RIBASPHERE [Suspect]
     Dosage: 1000 MG, QD
     Route: 048
     Dates: start: 20130306
  10. KLONOPIN [Suspect]
     Dosage: 1 MG, TID, 3 IN 1 D
     Route: 065
  11. LEXAPRO [Concomitant]
     Route: 065
  12. CELEXA [Concomitant]
     Dosage: 20 MG, QD, 1 IN 1 D
     Route: 065
     Dates: start: 20121206
  13. ABILIFY [Concomitant]

REACTIONS (42)
  - Nephritis [Unknown]
  - Diverticulitis [Unknown]
  - Suicide attempt [Unknown]
  - Throat cancer [Unknown]
  - Nausea [Unknown]
  - Headache [Unknown]
  - Pyrexia [Unknown]
  - Blood urine present [Unknown]
  - Anaemia [Unknown]
  - Suicidal ideation [Unknown]
  - Overdose [Recovered/Resolved]
  - Weight decreased [Unknown]
  - Decreased appetite [Unknown]
  - Dizziness [Unknown]
  - Hallucination [Unknown]
  - Fall [Unknown]
  - Limb injury [Unknown]
  - Dysgeusia [Unknown]
  - Injection site haemorrhage [Unknown]
  - Dysphonia [Unknown]
  - Thrombosis [Unknown]
  - Diarrhoea [Unknown]
  - Injection site bruising [Unknown]
  - Dyspnoea [Unknown]
  - Alopecia [Unknown]
  - Hordeolum [Unknown]
  - Oral pain [Unknown]
  - Laryngeal mass [Unknown]
  - Haemoglobin decreased [Unknown]
  - Haematocrit decreased [Unknown]
  - Pyrexia [Unknown]
  - Pain [Recovering/Resolving]
  - Local swelling [Unknown]
  - Dizziness [Unknown]
  - Swollen tongue [Unknown]
  - Productive cough [Unknown]
  - Leukoplakia oesophageal [Unknown]
  - Gastrooesophageal reflux disease [Unknown]
  - Pyrexia [Unknown]
  - Fatigue [Unknown]
  - Joint swelling [Unknown]
  - Local swelling [Unknown]
